FAERS Safety Report 9243094 (Version 1)
Quarter: 2013Q2

REPORT INFORMATION
  Report Type: Spontaneous
  Country: US (occurrence: US)
  Receive Date: 20130419
  Receipt Date: 20130419
  Transmission Date: 20140414
  Serious: Yes (Other)
  Sender: FDA-Public Use
  Company Number: US-ASTRAZENECA-2013SE23714

PATIENT
  Age: 82 Year
  Sex: Male

DRUGS (9)
  1. OMEPRAZOLE [Suspect]
     Indication: HELICOBACTER INFECTION
     Route: 048
  2. AMOXICILLIN [Interacting]
     Indication: HELICOBACTER INFECTION
  3. CLARITHROMYCIN [Interacting]
     Indication: HELICOBACTER INFECTION
  4. CLARITHROMYCIN [Interacting]
     Indication: HELICOBACTER INFECTION
  5. INSULIN DETEMIR [Interacting]
     Indication: TYPE 2 DIABETES MELLITUS
     Dosage: 32 UNITS AT BEDTIME
  6. INSULIN DETEMIR [Interacting]
     Indication: TYPE 2 DIABETES MELLITUS
     Dosage: 15 UNITS AT BEDTIME
  7. INSULIN DETEMIR [Interacting]
     Indication: TYPE 2 DIABETES MELLITUS
     Dosage: 10 UNITS ONCE A DAY
  8. INSULIN DETEMIR [Interacting]
     Indication: TYPE 2 DIABETES MELLITUS
     Dosage: 32 UNITS ONCE A DAY
  9. INSULIN ASPART [Concomitant]
     Dosage: 3 TIMES/DAY WITH MEALS USING A DOSE BASED ON CARBOHYDRATE INTAKE.

REACTIONS (2)
  - Drug interaction [Unknown]
  - Hypoglycaemia [Recovered/Resolved]
